FAERS Safety Report 4707826-5 (Version None)
Quarter: 2005Q2

REPORT INFORMATION
  Report Type: 
  Country: None (occurrence: None)
  Receive Date: 20050629
  Receipt Date: 20050307
  Transmission Date: 20051028
  Serious: No
  Sender: FDA-Public Use
  Company Number: 05P-163-0293038-00

PATIENT
  Age: 65 Year
  Sex: Female

DRUGS (3)
  1. HUMIRA [Suspect]
     Dosage: 40 MG
     Dates: start: 20040401
  2. AZATHIOPRINE [Concomitant]
  3. SULINDAC [Concomitant]

REACTIONS (1)
  - DRUG INEFFECTIVE [None]
